FAERS Safety Report 4866675-8 (Version None)
Quarter: 2005Q4

REPORT INFORMATION
  Report Type: 
  Country: None (occurrence: None)
  Receive Date: 20051221
  Receipt Date: 20051212
  Transmission Date: 20060501
  Serious: Yes (Hospitalization)
  Sender: FDA-Public Use
  Company Number: 2005168048

PATIENT
  Age: 74 Year
  Sex: Female

DRUGS (3)
  1. CABERGOLINE [Suspect]
     Indication: PARKINSON'S DISEASE
     Dosage: 0.5 MG (0.25 MG, BID), ORAL
     Route: 048
  2. SELEGILINE HYDROCHLORIDE (SELEGILINE HYDROCHLORIDE) [Concomitant]
  3. LEVODOPA-CARBIDOPA (CARBIDOPA, LEVODOPA) [Concomitant]

REACTIONS (1)
  - LOSS OF CONSCIOUSNESS [None]
